FAERS Safety Report 23520597 (Version 1)
Quarter: 2024Q1

REPORT INFORMATION
  Report Type: 
  Country: None (occurrence: None)
  Receive Date: 20240214
  Receipt Date: 20240214
  Transmission Date: 20240410
  Serious: No
  Sender: FDA-Public Use
  Company Number: CA-ROCHE-3296612

PATIENT

DRUGS (15)
  1. RITUXIMAB [Suspect]
     Active Substance: RITUXIMAB
  2. RITUXIMAB [Suspect]
     Active Substance: RITUXIMAB
  3. RITUXIMAB [Suspect]
     Active Substance: RITUXIMAB
  4. RITUXIMAB [Suspect]
     Active Substance: RITUXIMAB
  5. ASPIRIN [Concomitant]
     Active Substance: ASPIRIN
  6. GARLIC [Concomitant]
     Active Substance: GARLIC
  7. ALLOPURINOL [Concomitant]
     Active Substance: ALLOPURINOL
  8. BRILINTA [Concomitant]
     Active Substance: TICAGRELOR
  9. METOPROLOL [Concomitant]
     Active Substance: METOPROLOL
  10. PANTOPRAZOLE [Concomitant]
     Active Substance: PANTOPRAZOLE
  11. RAMIPRIL [Concomitant]
     Active Substance: RAMIPRIL
  12. ROSUVASTATIN [Concomitant]
     Active Substance: ROSUVASTATIN
  13. BENADRYL [Concomitant]
     Active Substance: DIPHENHYDRAMINE HYDROCHLORIDE
  14. METHYLPREDNISOLONE SODIUM SUCCINATE [Concomitant]
     Active Substance: METHYLPREDNISOLONE SODIUM SUCCINATE
  15. TYLENOL [Concomitant]
     Active Substance: ACETAMINOPHEN

REACTIONS (11)
  - Myocardial infarction [None]
  - Arthralgia [None]
  - Back pain [None]
  - C-reactive protein increased [None]
  - Granulomatosis with polyangiitis [None]
  - Hypoacusis [None]
  - Speech disorder [None]
  - Blood pressure diastolic decreased [None]
  - Heart rate decreased [None]
  - Hypertension [None]
  - Skin discolouration [None]
